FAERS Safety Report 26000464 (Version 1)
Quarter: 2025Q4

REPORT INFORMATION
  Report Type: Spontaneous
  Country: PR (occurrence: PR)
  Receive Date: 20251105
  Receipt Date: 20251105
  Transmission Date: 20260118
  Serious: No
  Sender: ANI
  Company Number: PR-ANIPHARMA-2025-PR-000073

PATIENT
  Age: 21 Year
  Sex: Male
  Weight: 109.32 kg

DRUGS (1)
  1. CORTICOTROPIN [Suspect]
     Active Substance: CORTICOTROPIN
     Indication: Multiple sclerosis
     Dosage: 80 UNITS SUBCUTANEOUSLY DAILY FOR 15 DAYS
     Route: 058

REACTIONS (1)
  - Injection site erythema [Unknown]
